FAERS Safety Report 23908201 (Version 1)
Quarter: 2024Q2

REPORT INFORMATION
  Report Type: Spontaneous
  Country: ES (occurrence: ES)
  Receive Date: 20240528
  Receipt Date: 20240528
  Transmission Date: 20240716
  Serious: Yes (Death, Hospitalization)
  Sender: FDA-Public Use
  Company Number: None

PATIENT
  Age: 69 Year
  Sex: Male

DRUGS (1)
  1. BEVACIZUMAB [Suspect]
     Active Substance: BEVACIZUMAB
     Indication: Glioblastoma multiforme
     Dosage: UNK
     Route: 042
     Dates: start: 20240226, end: 20240429

REACTIONS (2)
  - Intestinal perforation [Fatal]
  - Off label use [Unknown]

NARRATIVE: CASE EVENT DATE: 20240226
